FAERS Safety Report 24720373 (Version 1)
Quarter: 2024Q4

REPORT INFORMATION
  Report Type: Report from Study
  Country: AU (occurrence: AU)
  Receive Date: 20241211
  Receipt Date: 20241211
  Transmission Date: 20250115
  Serious: Yes (Other)
  Sender: ROCHE
  Company Number: AU-ROCHE-10000149059

PATIENT
  Age: 63 Year
  Sex: Male

DRUGS (6)
  1. OCREVUS [Suspect]
     Active Substance: OCRELIZUMAB
     Indication: Multiple sclerosis
     Route: 042
     Dates: start: 202309
  2. EZETIMIBE [Concomitant]
     Active Substance: EZETIMIBE
     Route: 048
  3. PREGABALIN [Concomitant]
     Active Substance: PREGABALIN
  4. ACETAMINOPHEN [Concomitant]
     Active Substance: ACETAMINOPHEN
  5. ASPIRIN [Concomitant]
     Active Substance: ASPIRIN
  6. ROSUVASTATIN [Concomitant]
     Active Substance: ROSUVASTATIN

REACTIONS (2)
  - Hip arthroplasty [Unknown]
  - COVID-19 [Unknown]

NARRATIVE: CASE EVENT DATE: 20241203
